FAERS Safety Report 21027538 (Version 1)
Quarter: 2022Q2

REPORT INFORMATION
  Report Type: Spontaneous
  Country: MA (occurrence: MA)
  Receive Date: 20220630
  Receipt Date: 20220630
  Transmission Date: 20220721
  Serious: Yes (Death, Hospitalization, Other)
  Sender: FDA-Public Use
  Company Number: MA-NATCOUSA-2022-NATCOUSA-000052

PATIENT
  Age: 51 Year
  Sex: Female

DRUGS (1)
  1. IMATINIB MESYLATE [Suspect]
     Active Substance: IMATINIB MESYLATE
     Indication: Gastrointestinal stromal tumour

REACTIONS (3)
  - Gastrointestinal stromal tumour [Fatal]
  - Disease progression [Fatal]
  - Drug resistance [Fatal]
